FAERS Safety Report 25609446 (Version 2)
Quarter: 2025Q3

REPORT INFORMATION
  Report Type: Report from Study
  Country: CA (occurrence: CA)
  Receive Date: 20250727
  Receipt Date: 20250917
  Transmission Date: 20251021
  Serious: Yes (Other)
  Sender: ABBVIE
  Company Number: CA-ABBVIE-6381670

PATIENT
  Age: 49 Year
  Sex: Female
  Weight: 90.7 kg

DRUGS (1)
  1. RINVOQ [Suspect]
     Active Substance: UPADACITINIB
     Indication: Dermatitis atopic
     Route: 048

REACTIONS (13)
  - Thyroid cancer [Recovered/Resolved]
  - Pruritus [Recovered/Resolved]
  - Diabetes mellitus [Unknown]
  - Lymphadenopathy [Unknown]
  - Swelling [Unknown]
  - Dysphagia [Unknown]
  - Immunodeficiency [Unknown]
  - Infection [Unknown]
  - Inflammation [Unknown]
  - Vitamin D decreased [Unknown]
  - Adrenal disorder [Unknown]
  - Anaemia [Unknown]
  - Autoimmune thyroiditis [Unknown]

NARRATIVE: CASE EVENT DATE: 20240101
